FAERS Safety Report 9008173 (Version 1)
Quarter: 2013Q1

REPORT INFORMATION
  Report Type: Spontaneous
  Country: US (occurrence: US)
  Receive Date: 20130111
  Receipt Date: 20130111
  Transmission Date: 20140127
  Serious: Yes (Other)
  Sender: FDA-Public Use
  Company Number: US-009507513-0911USA00646

PATIENT
  Age: 35 Year
  Sex: Male
  Weight: 83.92 kg

DRUGS (2)
  1. SINGULAIR [Suspect]
     Indication: MULTIPLE ALLERGIES
     Dosage: 1 DF, QD
     Route: 048
  2. NASONEX [Concomitant]
     Indication: MULTIPLE ALLERGIES

REACTIONS (2)
  - Respiratory tract infection [Unknown]
  - Upper respiratory tract infection [Unknown]
